FAERS Safety Report 24440722 (Version 1)
Quarter: 2024Q4

REPORT INFORMATION
  Report Type: Spontaneous
  Country: BR (occurrence: BR)
  Receive Date: 20241016
  Receipt Date: 20241016
  Transmission Date: 20250115
  Serious: Yes (Other)
  Sender: CELLTRION
  Company Number: BR-CELLTRION INC.-2023BR006938

PATIENT

DRUGS (23)
  1. INFLIXIMAB [Suspect]
     Active Substance: INFLIXIMAB
     Indication: Rheumatoid arthritis
     Dosage: 5 AMPOULES EVERY 2 MONTHS/5 AMPOULES OF 100 MG (500 MG TOTAL)
     Route: 042
     Dates: start: 20220906
  2. INFLIXIMAB [Suspect]
     Active Substance: INFLIXIMAB
     Dosage: 5 AMPOULES OF 100 MG (500 MG TOTAL) EVERY 2 MONTHS
     Route: 042
     Dates: start: 20240804
  3. ATENOLOL [Concomitant]
     Active Substance: ATENOLOL
     Indication: Hypertension
     Dosage: 2 TABLETS A DAY (START: 40 YEARS)
     Route: 048
  4. LOSARTAN [Concomitant]
     Active Substance: LOSARTAN
     Indication: Hypertension
     Dosage: 4 TABLETS A DAY (START: 40 YEARS)
     Route: 048
  5. NIFEDIPINE [Concomitant]
     Active Substance: NIFEDIPINE
     Indication: Hypertension
     Dosage: 2 CAPSULE PER DAY (START: 40 YEARS)
     Route: 048
  6. METFORMIN [Concomitant]
     Active Substance: METFORMIN HYDROCHLORIDE
     Indication: Diabetes mellitus
     Dosage: 2 CAPSULE PER DAY (START: 15 YEARS)
     Route: 048
  7. NPH INSULIN [Concomitant]
     Active Substance: INSULIN BEEF
     Indication: Diabetes mellitus
     Dosage: 50 UI PER DAY
     Route: 058
  8. NPH INSULIN [Concomitant]
     Active Substance: INSULIN BEEF
     Dosage: 40 UI PER DAY/40 UNITS, 30 UNITS IN THE MORNING AND 10 UNITS IN THE EVENING, APPLICATION PEN (START:
     Route: 058
  9. ROSUVASTATIN [Concomitant]
     Active Substance: ROSUVASTATIN
     Indication: Hypercholesterolaemia
     Dosage: 1 CAPSULE PER DAY (START: 15 YEARS)
     Route: 048
  10. VIT D [VITAMIN D NOS] [Concomitant]
     Indication: Supplementation therapy
     Dosage: 1 CAPSULE PER WEEEK (START: 2 YEARS)
     Route: 048
  11. VIT D [VITAMIN D NOS] [Concomitant]
     Dosage: 2 TABLETS ONCE A WEEK
     Route: 048
  12. AMLODIPINE [Concomitant]
     Active Substance: AMLODIPINE BESYLATE
     Indication: Hypertension
     Dosage: 2 TABLETS A DAY
     Route: 048
  13. ACETAMINOPHEN\CODEINE PHOSPHATE [Concomitant]
     Active Substance: ACETAMINOPHEN\CODEINE PHOSPHATE
     Indication: Pain
     Dosage: 2 TABLETS A DAY
     Route: 048
  14. BUPRENORPHINE [Concomitant]
     Active Substance: BUPRENORPHINE
     Indication: Pain
     Dosage: 1 PATCH EVERY 7 DAYS
     Route: 048
  15. PREGABALIN [Concomitant]
     Active Substance: PREGABALIN
     Indication: Pain
     Dosage: 3 TABLETS A DAY
     Route: 048
  16. CALCITRIOL [Concomitant]
     Active Substance: CALCITRIOL
     Indication: Supplementation therapy
     Dosage: 1 TABLET A DAY
     Route: 048
  17. ROSUVASTATIN [Concomitant]
     Active Substance: ROSUVASTATIN
     Indication: Hypercholesterolaemia
     Dosage: 1 TABLET A DAY
     Route: 048
  18. FUROSEMIDE [Concomitant]
     Active Substance: FUROSEMIDE
     Indication: Peripheral swelling
     Dosage: 1 TABLET A DAY
     Route: 048
  19. EZETIMIBE [Concomitant]
     Active Substance: EZETIMIBE
     Indication: Blood cholesterol
     Dosage: 1 TABLET A DAY
     Route: 048
  20. OMEPRAZOLE [Concomitant]
     Active Substance: OMEPRAZOLE
     Dosage: 1 TABLET A DAY
     Route: 048
  21. FERROUS SULFATE [Concomitant]
     Active Substance: FERROUS SULFATE
     Indication: Anaemia
     Dosage: 2 TABLETS A DAY
     Route: 048
  22. SPIRONOLACTONE [Concomitant]
     Active Substance: SPIRONOLACTONE
     Indication: Hypertension
     Dosage: 1 TABLET A DAY
     Route: 048
  23. SODIUM BICARBONATE [Concomitant]
     Active Substance: SODIUM BICARBONATE
     Dosage: 1 DESSERT SPOON EVERY DAY
     Route: 048

REACTIONS (3)
  - Psoriatic arthropathy [Recovered/Resolved]
  - Therapy interrupted [Unknown]
  - Product availability issue [Unknown]
